FAERS Safety Report 5737400-3 (Version None)
Quarter: 2008Q2

REPORT INFORMATION
  Report Type: 
  Country: None (occurrence: None)
  Receive Date: 20080514
  Receipt Date: 20080201
  Transmission Date: 20081010
  Serious: Yes (Other)
  Sender: FDA-Public Use
  Company Number: US-BRISTOL-MYERS SQUIBB COMPANY-14062764

PATIENT
  Sex: Female

DRUGS (4)
  1. IXEMPRA KIT [Suspect]
     Route: 042
  2. DECADRON [Concomitant]
     Indication: PREMEDICATION
  3. HISTAMINE ANTAGONIST [Concomitant]
     Indication: PREMEDICATION
  4. ANTIHISTAMINE NOS [Concomitant]
     Indication: PREMEDICATION

REACTIONS (2)
  - FEELING HOT [None]
  - RASH MACULAR [None]
